FAERS Safety Report 17805069 (Version 1)
Quarter: 2020Q2

REPORT INFORMATION
  Report Type: Spontaneous
  Country: US (occurrence: US)
  Receive Date: 20200519
  Receipt Date: 20200519
  Transmission Date: 20200714
  Serious: No
  Sender: FDA-Public Use
  Company Number: US-GILEAD-2020-0466889

PATIENT
  Sex: Male

DRUGS (17)
  1. FLORANEX [Concomitant]
     Active Substance: LACTOBACILLUS ACIDOPHILUS\LACTOBACILLUS DELBRUECKII SUBSP. BULGARICUS
  2. DILTIAZEM. [Concomitant]
     Active Substance: DILTIAZEM
  3. PANTOPRAZOLE [Concomitant]
     Active Substance: PANTOPRAZOLE
  4. MIRALAX [Concomitant]
     Active Substance: POLYETHYLENE GLYCOL 3350
  5. PULMICORT TURBUHALER [Concomitant]
     Active Substance: BUDESONIDE
  6. ATIVAN [Concomitant]
     Active Substance: LORAZEPAM
  7. PREDNISONE. [Concomitant]
     Active Substance: PREDNISONE
  8. ELIQUIS [Concomitant]
     Active Substance: APIXABAN
  9. BROVANA [Concomitant]
     Active Substance: ARFORMOTEROL TARTRATE
  10. ROXANOL [Concomitant]
     Active Substance: MORPHINE SULFATE
  11. ALBUTEROL SULFATE. [Concomitant]
     Active Substance: ALBUTEROL SULFATE
  12. SENOKOT [Concomitant]
     Active Substance: SENNOSIDES
  13. COLACE [Concomitant]
     Active Substance: DOCUSATE SODIUM
  14. ZITHROMAX [Concomitant]
     Active Substance: AZITHROMYCIN DIHYDRATE
  15. COZAAR [Concomitant]
     Active Substance: LOSARTAN POTASSIUM
  16. MIRTAZAPINE. [Concomitant]
     Active Substance: MIRTAZAPINE
  17. EPCLUSA [Suspect]
     Active Substance: SOFOSBUVIR\VELPATASVIR
     Indication: PRODUCT USED FOR UNKNOWN INDICATION
     Dosage: 1 DOSAGE FORM, QD
     Route: 048
     Dates: start: 20200421

REACTIONS (1)
  - Fatigue [Unknown]
